FAERS Safety Report 5753583-3 (Version None)
Quarter: 2008Q2

REPORT INFORMATION
  Report Type: 
  Country: None (occurrence: None)
  Receive Date: 20080527
  Receipt Date: 20080508
  Transmission Date: 20081010
  Serious: Yes (Hospitalization)
  Sender: FDA-Public Use
  Company Number: 2008AL004247

PATIENT
  Sex: Female

DRUGS (1)
  1. DIGOXIN [Suspect]
     Dosage: 0.125 MG

REACTIONS (5)
  - DIZZINESS [None]
  - HEART RATE IRREGULAR [None]
  - SOMNOLENCE [None]
  - SURGERY [None]
  - WALKING AID USER [None]
